FAERS Safety Report 6763737-5 (Version None)
Quarter: 2010Q2

REPORT INFORMATION
  Report Type: 
  Country: None (occurrence: None)
  Receive Date: 20100610
  Receipt Date: 20100528
  Transmission Date: 20101027
  Serious: Yes (Hospitalization)
  Sender: FDA-Public Use
  Company Number: US-BAUSCH-2010BL002920

PATIENT
  Age: 62 Year
  Sex: Male

DRUGS (5)
  1. MINOXIDIL [Suspect]
     Indication: HYPERTENSION
     Route: 048
  2. MINOXIDIL [Suspect]
     Route: 048
  3. ATENOLOL [Concomitant]
     Indication: HYPERTENSION
  4. LISINOPRIL [Concomitant]
     Indication: HYPERTENSION
  5. HYDROCHLOROTHIAZIDE [Concomitant]
     Indication: HYPERTENSION

REACTIONS (1)
  - PLEURAL EFFUSION [None]
